FAERS Safety Report 5120302-3 (Version None)
Quarter: 2006Q4

REPORT INFORMATION
  Report Type: 
  Country: None (occurrence: None)
  Receive Date: 20061002
  Receipt Date: 20061002
  Transmission Date: 20070319
  Serious: No
  Sender: FDA-Public Use
  Company Number: None

PATIENT
  Age: 42 Year
  Sex: Female
  Weight: 68.0396 kg

DRUGS (2)
  1. CAPZASIN 0.1% CHATTEM [Suspect]
     Indication: MUSCLE SPASMS
     Dosage: SMALL AMOUNT ONE TIME USE TOP
     Route: 061
     Dates: start: 20061001, end: 20061001
  2. CAPZASIN 0.1% CHATTEM [Suspect]
     Indication: PAIN
     Dosage: SMALL AMOUNT ONE TIME USE TOP
     Route: 061
     Dates: start: 20061001, end: 20061001

REACTIONS (1)
  - SKIN BURNING SENSATION [None]
